FAERS Safety Report 6325774-4 (Version None)
Quarter: 2009Q3

REPORT INFORMATION
  Report Type: 
  Country: None (occurrence: None)
  Receive Date: 20090824
  Receipt Date: 20090717
  Transmission Date: 20100115
  Serious: No
  Sender: FDA-Public Use
  Company Number: US-ABBOTT-09P-163-0586484-00

PATIENT
  Sex: Female
  Weight: 122.58 kg

DRUGS (17)
  1. NIASPAN [Suspect]
     Indication: HIGH DENSITY LIPOPROTEIN ABNORMAL
     Dosage: EVERY NIGHT
     Dates: start: 20090627, end: 20090713
  2. NIASPAN [Suspect]
     Indication: LOW DENSITY LIPOPROTEIN ABNORMAL
     Dosage: EVERY NIGHT
     Dates: start: 20090714
  3. NIASPAN [Suspect]
     Indication: BLOOD TRIGLYCERIDES ABNORMAL
  4. NIASPAN [Suspect]
     Indication: BLOOD CHOLESTEROL ABNORMAL
  5. NIASPAN [Suspect]
     Indication: CAROTID ARTERY OCCLUSION
  6. NIASPAN [Suspect]
     Indication: HIGH DENSITY LIPOPROTEIN ABNORMAL
  7. NIASPAN [Suspect]
     Indication: LOW DENSITY LIPOPROTEIN ABNORMAL
  8. NIASPAN [Suspect]
     Indication: BLOOD TRIGLYCERIDES ABNORMAL
  9. NIASPAN [Suspect]
     Indication: BLOOD CHOLESTEROL ABNORMAL
  10. NIASPAN [Suspect]
     Indication: CAROTID ARTERY OCCLUSION
  11. ASPIRIN [Concomitant]
     Indication: DRUG USE FOR UNKNOWN INDICATION
     Dosage: DAILY
     Route: 048
  12. WELCHOL [Concomitant]
     Indication: DRUG USE FOR UNKNOWN INDICATION
     Dosage: 2 PILLS WITH EVERY MEAL DAILY
     Route: 048
  13. ZETIA [Concomitant]
     Indication: DRUG USE FOR UNKNOWN INDICATION
     Dosage: DAILY
     Route: 048
  14. ZANTAC [Concomitant]
     Indication: DRUG USE FOR UNKNOWN INDICATION
     Dosage: DAILY
     Route: 048
  15. OMEPRAZOLE [Concomitant]
     Indication: DRUG USE FOR UNKNOWN INDICATION
     Route: 048
     Dates: start: 20090717
  16. CAPADEX [Concomitant]
     Indication: DRUG USE FOR UNKNOWN INDICATION
     Dosage: DAILY
     Route: 048
  17. VERAPAMIL [Concomitant]
     Indication: DRUG USE FOR UNKNOWN INDICATION
     Dosage: DAILY
     Route: 048
     Dates: start: 19970101

REACTIONS (3)
  - FEELING HOT [None]
  - PALPITATIONS [None]
  - POLLAKIURIA [None]
